FAERS Safety Report 7312561-3 (Version None)
Quarter: 2011Q1

REPORT INFORMATION
  Report Type: 
  Country: None (occurrence: None)
  Receive Date: 20110224
  Receipt Date: 20110215
  Transmission Date: 20110831
  Serious: Yes (Hospitalization, Other)
  Sender: FDA-Public Use
  Company Number: US-ASTRAZENECA-2011SE08970

PATIENT
  Age: 67 Year
  Sex: Female

DRUGS (1)
  1. SEROQUEL [Suspect]
     Indication: INSOMNIA
     Route: 048

REACTIONS (8)
  - UPPER LIMB FRACTURE [None]
  - BACK DISORDER [None]
  - WRIST FRACTURE [None]
  - FOOT FRACTURE [None]
  - FALL [None]
  - SPINAL FRACTURE [None]
  - KNEE OPERATION [None]
  - JOINT SPRAIN [None]
